FAERS Safety Report 4319824-4 (Version None)
Quarter: 2004Q1

REPORT INFORMATION
  Report Type: 
  Country: None (occurrence: None)
  Receive Date: 20040317
  Receipt Date: 20040304
  Transmission Date: 20041129
  Serious: Yes (Hospitalization)
  Sender: FDA-Public Use
  Company Number: 2003-BP-09498BP (2)

PATIENT
  Age: 45 Year
  Sex: Female

DRUGS (1)
  1. VIRAMUNE [Suspect]
     Indication: HIV INFECTION
     Dosage: PO
     Route: 048

REACTIONS (7)
  - DRY MOUTH [None]
  - FIBROMYALGIA [None]
  - KERATOCONJUNCTIVITIS SICCA [None]
  - MUSCULAR WEAKNESS [None]
  - MYOSITIS [None]
  - NEUROPATHY [None]
  - RASH PRURITIC [None]
